FAERS Safety Report 15455805 (Version 1)
Quarter: 2018Q4

REPORT INFORMATION
  Report Type: Spontaneous
  Country: US (occurrence: US)
  Receive Date: 20181002
  Receipt Date: 20181002
  Transmission Date: 20190204
  Serious: No
  Sender: FDA-Public Use
  Company Number: PHEH2018US040197

PATIENT
  Sex: Female

DRUGS (1)
  1. HYDROXYCHLOROQUINE SANDOZ [Suspect]
     Active Substance: HYDROXYCHLOROQUINE
     Indication: PRODUCT USED FOR UNKNOWN INDICATION
     Dosage: 200 MG, BID
     Route: 065
     Dates: start: 2004

REACTIONS (3)
  - Muscular weakness [Unknown]
  - Nerve conduction studies abnormal [Unknown]
  - Hyperreflexia [Unknown]

NARRATIVE: CASE EVENT DATE: 2010
